FAERS Safety Report 8789524 (Version 1)
Quarter: 2012Q4

REPORT INFORMATION
  Report Type: Spontaneous
  Country: US (occurrence: None)
  Receive Date: 20120910
  Receipt Date: 20120910
  Transmission Date: 20130627
  Serious: Yes (Other)
  Sender: FDA-Public Use
  Company Number: None

PATIENT
  Age: 56 Year
  Sex: Male
  Weight: 92.99 kg

DRUGS (3)
  1. CARISOPRODOL [Suspect]
     Dosage: 350 mg 3id po
     Route: 048
     Dates: start: 20120825, end: 20120903
  2. KETOCONAZOLE [Suspect]
     Dosage: 2% every other night top
     Route: 061
     Dates: start: 20120825, end: 20120903
  3. KETOCONAZOLE [Suspect]
     Dosage: 2% every other night top
     Route: 061
     Dates: start: 20120825, end: 20120903

REACTIONS (4)
  - Nausea [None]
  - Vomiting [None]
  - Influenza [None]
  - Hypophagia [None]
